FAERS Safety Report 20203164 (Version 1)
Quarter: 2021Q4

REPORT INFORMATION
  Report Type: Other
  Country: GB (occurrence: GB)
  Receive Date: 20211218
  Receipt Date: 20211218
  Transmission Date: 20220303
  Serious: Yes (Hospitalization)
  Sender: FDA-Public Use
  Company Number: GB-MACLEODS PHARMA UK LTD-MAC2021033725

PATIENT

DRUGS (7)
  1. SILDENAFIL [Suspect]
     Active Substance: SILDENAFIL
     Indication: Raynaud^s phenomenon
     Dosage: 25 MILLIGRAM, TID
     Route: 048
     Dates: start: 20160415, end: 20211201
  2. POLYETHYLENE GLYCOL 3350\POTASSIUM CHLORIDE\SODIUM BICARBONATE\SODIUM [Concomitant]
     Active Substance: POLYETHYLENE GLYCOL 3350\POTASSIUM CHLORIDE\SODIUM BICARBONATE\SODIUM CHLORIDE
     Indication: Product used for unknown indication
     Dosage: UNK
     Route: 065
  3. SENNA [Concomitant]
     Active Substance: SENNA LEAF\SENNOSIDES\SENNOSIDES A AND B
     Indication: Product used for unknown indication
     Dosage: UNK
     Route: 065
  4. LEVETIRACETAM [Concomitant]
     Active Substance: LEVETIRACETAM
     Indication: Product used for unknown indication
     Dosage: UNK
     Route: 065
  5. FUROSEMIDE [Concomitant]
     Active Substance: FUROSEMIDE
     Indication: Product used for unknown indication
     Dosage: UNK
     Route: 065
  6. AMLODIPINE [Concomitant]
     Active Substance: AMLODIPINE BESYLATE
     Indication: Product used for unknown indication
     Dosage: UNK
     Route: 065
  7. Nicotine replacement therapy [Concomitant]
     Indication: Product used for unknown indication
     Dosage: UNK
     Route: 065

REACTIONS (2)
  - Basal ganglia stroke [Recovered/Resolved]
  - Cerebral haemorrhage [Unknown]

NARRATIVE: CASE EVENT DATE: 20210827
